FAERS Safety Report 6934927-3 (Version None)
Quarter: 2010Q3

REPORT INFORMATION
  Report Type: 
  Country: None (occurrence: None)
  Receive Date: 20100821
  Receipt Date: 20100810
  Transmission Date: 20110219
  Serious: Yes (Death, Hospitalization)
  Sender: FDA-Public Use
  Company Number: GXKR2010ES08416

PATIENT
  Age: 81 Year
  Sex: Male

DRUGS (12)
  1. PREDNISONE (NGX) [Suspect]
     Indication: NON-HODGKIN'S LYMPHOMA
     Dosage: UNK
     Route: 065
     Dates: start: 20081101
  2. RITUXIMAB [Suspect]
     Indication: NON-HODGKIN'S LYMPHOMA
     Dosage: UNK
     Route: 065
     Dates: start: 20081101
  3. RITUXIMAB [Suspect]
     Dosage: UNK
     Dates: start: 20090401
  4. VINCRISTINE (NGX) [Suspect]
     Indication: NON-HODGKIN'S LYMPHOMA
     Dosage: UNK
     Route: 065
     Dates: start: 20081101
  5. CYCLOPHOSPHAMIDE [Suspect]
     Indication: NON-HODGKIN'S LYMPHOMA
     Dosage: UNK
     Route: 065
     Dates: start: 20081101
  6. LANSOPRAZOLE [Concomitant]
  7. PRAVASTATIN [Concomitant]
  8. TAMSULOSIN HCL [Concomitant]
  9. FUROSEMIDE [Concomitant]
  10. ALLOPURINOL [Concomitant]
  11. INHALATION THERAPY [Concomitant]
  12. RED BLOOD CELLS [Concomitant]
     Dosage: 2 U, UNK

REACTIONS (11)
  - ABDOMINAL PAIN [None]
  - ASCITES [None]
  - ASTHENIA [None]
  - GENERAL PHYSICAL HEALTH DETERIORATION [None]
  - HEPATIC ENCEPHALOPATHY [None]
  - HEPATIC FAILURE [None]
  - HEPATITIS B [None]
  - HYPOALBUMINAEMIA [None]
  - LIVER DISORDER [None]
  - PERITONITIS BACTERIAL [None]
  - RENAL IMPAIRMENT [None]
